FAERS Safety Report 25025429 (Version 1)
Quarter: 2025Q1

REPORT INFORMATION
  Report Type: Spontaneous
  Country: IE (occurrence: IE)
  Receive Date: 20250228
  Receipt Date: 20250228
  Transmission Date: 20250409
  Serious: Yes (Other)
  Sender: ELI LILLY AND COMPANY
  Company Number: IE-ABBVIE-6127708

PATIENT
  Age: 58 Year
  Sex: Male

DRUGS (9)
  1. PIRTOBRUTINIB [Suspect]
     Active Substance: PIRTOBRUTINIB
     Indication: Product used for unknown indication
     Route: 065
     Dates: start: 202408
  2. VENETOCLAX [Suspect]
     Active Substance: VENETOCLAX
     Indication: Chronic lymphocytic leukaemia
     Route: 048
     Dates: start: 202207
  3. VENETOCLAX [Suspect]
     Active Substance: VENETOCLAX
     Route: 048
     Dates: start: 2013, end: 2024
  4. BENDAMUSTINE [Suspect]
     Active Substance: BENDAMUSTINE
     Indication: Product used for unknown indication
     Route: 065
  5. ACALABRUTINIB [Suspect]
     Active Substance: ACALABRUTINIB
     Indication: Product used for unknown indication
     Route: 065
     Dates: start: 202403
  6. IBRUTINIB [Suspect]
     Active Substance: IBRUTINIB
     Indication: Chronic lymphocytic leukaemia
     Route: 048
     Dates: start: 201409, end: 202207
  7. IDELALISIB [Suspect]
     Active Substance: IDELALISIB
     Indication: Product used for unknown indication
     Route: 065
  8. RITUXIMAB [Suspect]
     Active Substance: RITUXIMAB
     Indication: Product used for unknown indication
     Route: 065
  9. OBINUTUZUMAB [Suspect]
     Active Substance: OBINUTUZUMAB
     Indication: Product used for unknown indication
     Route: 065

REACTIONS (9)
  - Bone marrow failure [Unknown]
  - Aplasia pure red cell [Unknown]
  - Pancytopenia [Unknown]
  - Gastrointestinal stromal tumour [Unknown]
  - Anaemia [Unknown]
  - Reticulocytopenia [Unknown]
  - Spleen atrophy [Unknown]
  - Lymphadenopathy [Unknown]
  - Hepatosplenomegaly [Unknown]
